FAERS Safety Report 6909615-X (Version None)
Quarter: 2010Q3

REPORT INFORMATION
  Report Type: 
  Country: None (occurrence: None)
  Receive Date: 20100805
  Receipt Date: 20100505
  Transmission Date: 20110219
  Serious: No
  Sender: FDA-Public Use
  Company Number: US-TYCO HEALTHCARE/MALLINCKRODT-T201001158

PATIENT

DRUGS (1)
  1. FENTANYL CITRATE [Suspect]
     Indication: BACK PAIN
     Dosage: 1600 UG, UNK
     Route: 048
     Dates: start: 20100101

REACTIONS (2)
  - OFF LABEL USE [None]
  - TOOTH EROSION [None]
